FAERS Safety Report 20015928 (Version 1)
Quarter: 2021Q4

REPORT INFORMATION
  Report Type: Spontaneous
  Country: US (occurrence: None)
  Receive Date: 20211102
  Receipt Date: 20211102
  Transmission Date: 20220303
  Serious: No
  Sender: FDA-Public Use
  Company Number: None

PATIENT
  Sex: Male
  Weight: 135.36 kg

DRUGS (23)
  1. ABIRATERONE [Suspect]
     Active Substance: ABIRATERONE
     Indication: Prostate cancer
     Dosage: FREQUENCY : DAILY;?
     Route: 048
     Dates: start: 20210720
  2. PREDNISONE [Suspect]
     Active Substance: PREDNISONE
     Indication: Prostate cancer
     Dosage: FREQUENCY : TWICE A DAY;?
     Route: 048
     Dates: start: 20210720
  3. WARFARIN [Concomitant]
     Active Substance: WARFARIN
  4. ACYCLOVIR [Concomitant]
     Active Substance: ACYCLOVIR
  5. ALBUTEROL [Concomitant]
     Active Substance: ALBUTEROL
  6. ALLEGRA [Concomitant]
     Active Substance: FEXOFENADINE HYDROCHLORIDE
  7. ALPHAGAN P [Concomitant]
     Active Substance: BRIMONIDINE TARTRATE
  8. ASPIRIN [Concomitant]
     Active Substance: ASPIRIN
  9. ATORVASTATIN [Concomitant]
     Active Substance: ATORVASTATIN
  10. CALCIUM CARBONATE [Concomitant]
     Active Substance: CALCIUM CARBONATE
  11. COSOPT PF [Concomitant]
     Active Substance: DORZOLAMIDE HYDROCHLORIDE\TIMOLOL MALEATE
  12. CYANOCOBALAMIN [Concomitant]
     Active Substance: CYANOCOBALAMIN
  13. ENTRESTO [Concomitant]
     Active Substance: SACUBITRIL\VALSARTAN
  14. FEXOFENADINE [Concomitant]
     Active Substance: FEXOFENADINE HYDROCHLORIDE
  15. FLUOXETINE [Concomitant]
     Active Substance: FLUOXETINE HYDROCHLORIDE
  16. FOLIC ACID [Concomitant]
     Active Substance: FOLIC ACID
  17. FUROSEMIDE [Concomitant]
     Active Substance: FUROSEMIDE
  18. GABAPENTIN [Concomitant]
     Active Substance: GABAPENTIN
  19. GLIMEPIRIDE [Concomitant]
     Active Substance: GLIMEPIRIDE
  20. JANUVIA [Concomitant]
     Active Substance: SITAGLIPTIN PHOSPHATE
  21. LASIX [Concomitant]
     Active Substance: FUROSEMIDE
  22. METFORMIN [Concomitant]
     Active Substance: METFORMIN HYDROCHLORIDE
  23. METHIMAZOLE [Concomitant]
     Active Substance: METHIMAZOLE

REACTIONS (2)
  - Rhinorrhoea [None]
  - Diarrhoea [None]
